FAERS Safety Report 21675728 (Version 1)
Quarter: 2022Q4

REPORT INFORMATION
  Report Type: Spontaneous
  Country: US (occurrence: US)
  Receive Date: 20221202
  Receipt Date: 20221202
  Transmission Date: 20230113
  Serious: No
  Sender: FDA-Public Use
  Company Number: US-BRISTOL-MYERS SQUIBB COMPANY-2022-146260

PATIENT
  Age: 54 Year
  Sex: Female

DRUGS (2)
  1. SPRYCEL [Suspect]
     Active Substance: DASATINIB
     Indication: Chronic myeloid leukaemia
     Dosage: FREQUENCY- DAILY
     Route: 048
     Dates: start: 202106
  2. SPRYCEL [Suspect]
     Active Substance: DASATINIB
     Indication: Neoplasm malignant

REACTIONS (1)
  - Haemorrhoids [Unknown]
